FAERS Safety Report 8461257-3 (Version None)
Quarter: 2012Q2

REPORT INFORMATION
  Report Type: 
  Country: None (occurrence: None)
  Receive Date: 20120619
  Receipt Date: 20120619
  Transmission Date: 20120825
  Serious: Yes (Hospitalization)
  Sender: FDA-Public Use
  Company Number: None

PATIENT
  Age: 30 Year
  Sex: Male

DRUGS (1)
  1. NAPROXEN [Suspect]
     Indication: MIGRAINE
     Dosage: PO
     Route: 048
     Dates: start: 20120120, end: 20120120

REACTIONS (6)
  - MIGRAINE [None]
  - NAUSEA [None]
  - OESOPHAGEAL RUPTURE [None]
  - VOMITING [None]
  - GASTRITIS [None]
  - PNEUMOMEDIASTINUM [None]
